FAERS Safety Report 9659280 (Version 2)
Quarter: 2014Q1

REPORT INFORMATION
  Report Type: Spontaneous
  Country: US (occurrence: US)
  Receive Date: 20131031
  Receipt Date: 20140213
  Transmission Date: 20141002
  Serious: No
  Sender: FDA-Public Use
  Company Number: US-B.I. PHARMACEUTICALS,INC./RIDGEFIELD-2013-BI-33756BP

PATIENT
  Age: 73 Year
  Sex: Female

DRUGS (7)
  1. SPIRIVA [Suspect]
     Indication: CHRONIC OBSTRUCTIVE PULMONARY DISEASE
     Dosage: 18 MCG
     Route: 055
     Dates: start: 201306
  2. LOSARTAN [Concomitant]
     Indication: HYPERTENSION
     Route: 048
  3. TRAZODONE [Concomitant]
     Route: 048
  4. LOVASTATIN [Concomitant]
     Dosage: 40 MG
     Route: 048
  5. BISOPROLOL [Concomitant]
     Dosage: 7.5 MG
     Route: 048
  6. CLOPIDOGREL [Concomitant]
     Indication: CARDIAC DISORDER
     Route: 048
  7. ALBUTEROL [Concomitant]
     Route: 055

REACTIONS (4)
  - Sinus congestion [Not Recovered/Not Resolved]
  - Sneezing [Not Recovered/Not Resolved]
  - Rhinorrhoea [Not Recovered/Not Resolved]
  - Product quality issue [Recovered/Resolved]
